FAERS Safety Report 21739167 (Version 1)
Quarter: 2022Q4

REPORT INFORMATION
  Report Type: Spontaneous
  Country: GB (occurrence: GB)
  Receive Date: 20221216
  Receipt Date: 20221216
  Transmission Date: 20230113
  Serious: Yes (Hospitalization, Other)
  Sender: FDA-Public Use
  Company Number: None

PATIENT
  Age: 58 Year
  Sex: Female
  Weight: 76.64 kg

DRUGS (25)
  1. LISINOPRIL [Suspect]
     Active Substance: LISINOPRIL
     Dosage: 1 TABLET ONCE A DAY,  STRENGTH 5MG/ 10MG
     Dates: start: 20221027, end: 20221103
  2. ATORVASTATIN [Concomitant]
     Active Substance: ATORVASTATIN
     Dosage: 1 TABLET ONE A DAY
     Dates: start: 20220811
  3. INDAPAMIDE [Concomitant]
     Active Substance: INDAPAMIDE
     Dosage: 1 TABLET ONCE A DAY
     Dates: start: 20220822
  4. LISINOPRIL [Concomitant]
     Active Substance: LISINOPRIL
     Dosage: 1 TABLET ONCE A DAY
     Dates: start: 20220822
  5. ATORVASTATIN [Concomitant]
     Active Substance: ATORVASTATIN
     Dosage: 1 TABLET ONE A DAY
     Dates: start: 20221027
  6. ATORVASTATIN [Concomitant]
     Active Substance: ATORVASTATIN
     Dosage: 1 TABLET ONE A DAY
     Dates: start: 20220822
  7. ATORVASTATIN [Concomitant]
     Active Substance: ATORVASTATIN
     Dosage: 1 TABLET ONE A DAY
     Dates: start: 20221103
  8. ATORVASTATIN [Concomitant]
     Active Substance: ATORVASTATIN
     Dosage: 1 TABLET ONE A DAY
     Dates: start: 20220923, end: 20221027
  9. ATORVASTATIN [Concomitant]
     Active Substance: ATORVASTATIN
     Dosage: 1 TABLET ONE A DAY
     Dates: start: 20221027, end: 20221103
  10. ATORVASTATIN [Concomitant]
     Active Substance: ATORVASTATIN
     Dosage: 1 TABLET ONE A DAY
     Dates: start: 20220923
  11. ATORVASTATIN [Concomitant]
     Active Substance: ATORVASTATIN
     Dosage: 1 TABLET ONE A DAY
     Dates: start: 20220811, end: 20220822
  12. ATORVASTATIN [Concomitant]
     Active Substance: ATORVASTATIN
     Dosage: 1 TABLET ONE A DAY
     Dates: start: 20220822, end: 20220902
  13. ATORVASTATIN [Concomitant]
     Active Substance: ATORVASTATIN
     Dosage: 1 TABLET ONE A DAY
     Dates: start: 20220902
  14. ATORVASTATIN [Concomitant]
     Active Substance: ATORVASTATIN
     Dosage: 1 TABLET ONE A DAY
     Dates: start: 20220902, end: 20220923
  15. LISINOPRIL [Concomitant]
     Active Substance: LISINOPRIL
     Dosage: 1 TABLET ONCE A DAY
     Dates: start: 20221103
  16. LISINOPRIL [Concomitant]
     Active Substance: LISINOPRIL
     Dosage: 1 TABLET ONCE A DAY
     Dates: start: 20220902, end: 20220923
  17. LISINOPRIL [Concomitant]
     Active Substance: LISINOPRIL
     Dosage: 1 TABLET ONCE A DAY
     Dates: start: 20220822
  18. LISINOPRIL [Concomitant]
     Active Substance: LISINOPRIL
     Dosage: 1 TABLET ONCE A DAY
     Dates: start: 20220923, end: 20221027
  19. LISINOPRIL [Concomitant]
     Active Substance: LISINOPRIL
     Dosage: 1 TABLET ONCE A DAY
     Dates: start: 20221027
  20. LISINOPRIL [Concomitant]
     Active Substance: LISINOPRIL
     Dosage: 1 TABLET ONCE A DAY
     Dates: start: 20220811, end: 20220822
  21. LISINOPRIL [Concomitant]
     Active Substance: LISINOPRIL
     Dosage: 1 TABLET ONCE A DAY
     Dates: start: 20220902
  22. LISINOPRIL [Concomitant]
     Active Substance: LISINOPRIL
     Dosage: 1 TABLET ONCE A DAY
     Dates: start: 20220923
  23. LISINOPRIL [Concomitant]
     Active Substance: LISINOPRIL
     Dosage: 1 TABLET ONCE A DAY
     Dates: start: 20220811
  24. LISINOPRIL [Concomitant]
     Active Substance: LISINOPRIL
     Dosage: 1 TABLET ONCE A DAY
     Dates: start: 20221027, end: 20221103
  25. LISINOPRIL [Concomitant]
     Active Substance: LISINOPRIL
     Dosage: 1 TABLET ONCE A DAY
     Dates: start: 20220822, end: 20220902

REACTIONS (1)
  - Hypomagnesaemia [Recovered/Resolved]
